FAERS Safety Report 12380649 (Version 2)
Quarter: 2016Q2

REPORT INFORMATION
  Report Type: Spontaneous
  Country: US (occurrence: US)
  Receive Date: 20160518
  Receipt Date: 20160610
  Transmission Date: 20160815
  Serious: Yes (Other)
  Sender: FDA-Public Use
  Company Number: US-UNITED THERAPEUTICS-UNT-2016-001821

PATIENT
  Sex: Female
  Weight: 74.83 kg

DRUGS (6)
  1. TYVASO [Suspect]
     Active Substance: TREPROSTINIL
     Dosage: UNK
  2. TYVASO [Suspect]
     Active Substance: TREPROSTINIL
     Indication: PULMONARY ARTERIAL HYPERTENSION
     Dosage: 54 ?G, QID
     Dates: start: 20101220
  3. TYVASO [Suspect]
     Active Substance: TREPROSTINIL
     Dosage: 18-54 ?G, QID
     Dates: start: 20110103
  4. TYVASO [Suspect]
     Active Substance: TREPROSTINIL
     Dosage: UNK
  5. TRACLEER [Concomitant]
     Active Substance: BOSENTAN
     Indication: PRODUCT USED FOR UNKNOWN INDICATION
  6. AMLODIPINE [Concomitant]
     Active Substance: AMLODIPINE BESYLATE
     Indication: PRODUCT USED FOR UNKNOWN INDICATION

REACTIONS (12)
  - Dementia [Unknown]
  - Asthenia [Unknown]
  - Headache [Unknown]
  - Dizziness [Unknown]
  - Drug hypersensitivity [Unknown]
  - Memory impairment [Unknown]
  - Drug dose omission [Unknown]
  - Therapy cessation [Unknown]
  - Malaise [Recovering/Resolving]
  - Rash pruritic [Unknown]
  - Treatment noncompliance [Unknown]
  - Fatigue [Unknown]

NARRATIVE: CASE EVENT DATE: 2014
